FAERS Safety Report 5901128-7 (Version None)
Quarter: 2008Q3

REPORT INFORMATION
  Report Type: 
  Country: None (occurrence: None)
  Receive Date: 20080924
  Receipt Date: 20080909
  Transmission Date: 20090109
  Serious: Yes (Hospitalization)
  Sender: FDA-Public Use
  Company Number: DSA_32350_2008

PATIENT
  Sex: Male

DRUGS (1)
  1. LORAZEPAM [Suspect]
     Dosage: (25 MG NOT THE PERSCRIBED AMOUNT ORAL)
     Route: 048
     Dates: start: 20080822, end: 20080825

REACTIONS (4)
  - BRADYCARDIA [None]
  - DRUG ABUSE [None]
  - OVERDOSE [None]
  - SOMNOLENCE [None]
